FAERS Safety Report 13532742 (Version 1)
Quarter: 2017Q2

REPORT INFORMATION
  Report Type: Spontaneous
  Country: AU (occurrence: AU)
  Receive Date: 20170510
  Receipt Date: 20170510
  Transmission Date: 20170830
  Serious: No
  Sender: FDA-Public Use
  Company Number: AU-ELI_LILLY_AND_COMPANY-AU201704011586

PATIENT
  Sex: Female

DRUGS (1)
  1. OLANZAPINE. [Suspect]
     Active Substance: OLANZAPINE
     Indication: PRODUCT USED FOR UNKNOWN INDICATION
     Dosage: 7.5 MG, UNKNOWN
     Route: 065

REACTIONS (6)
  - Contusion [Unknown]
  - Osteoporosis [Unknown]
  - Depression [Unknown]
  - Feeling drunk [Unknown]
  - Antipsychotic drug level increased [Unknown]
  - Back pain [Unknown]
